FAERS Safety Report 14936755 (Version 2)
Quarter: 2018Q3

REPORT INFORMATION
  Report Type: Spontaneous
  Country: FR (occurrence: FR)
  Receive Date: 20180525
  Receipt Date: 20180703
  Transmission Date: 20181010
  Serious: Yes (Other)
  Sender: FDA-Public Use
  Company Number: FR-MERCK KGAA-2048425

PATIENT
  Age: 71 Year
  Sex: Female

DRUGS (1)
  1. NOVOTHYROX [Suspect]
     Active Substance: LEVOTHYROXINE SODIUM
     Indication: AUTOIMMUNE THYROIDITIS
     Dates: start: 201703, end: 20180522

REACTIONS (36)
  - Fear [None]
  - Alopecia [Not Recovered/Not Resolved]
  - Dizziness [None]
  - Alpha 1 globulin increased [None]
  - Blood pressure increased [None]
  - Dysentery [Not Recovered/Not Resolved]
  - Tinnitus [None]
  - Irritability [None]
  - Somnolence [None]
  - Mean cell haemoglobin decreased [Not Recovered/Not Resolved]
  - Contusion [None]
  - White blood cell count increased [None]
  - Neutrophil count increased [None]
  - Hypoalbuminaemia [None]
  - Asthenia [None]
  - Immunoglobulins decreased [None]
  - Night sweats [None]
  - Nausea [Not Recovered/Not Resolved]
  - Carcinoembryonic antigen increased [None]
  - Decreased activity [None]
  - Fear of falling [None]
  - Blood thyroid stimulating hormone increased [None]
  - Haematocrit decreased [Recovered/Resolved]
  - Headache [None]
  - Nervousness [None]
  - Fatigue [None]
  - Joint swelling [None]
  - General physical health deterioration [None]
  - Decreased interest [None]
  - Sleep disorder [None]
  - Suicidal ideation [Not Recovered/Not Resolved]
  - Vomiting [Not Recovered/Not Resolved]
  - Dyspnoea [None]
  - Mental disorder [None]
  - Weight increased [Not Recovered/Not Resolved]
  - Pruritus [None]

NARRATIVE: CASE EVENT DATE: 20170505
